FAERS Safety Report 20670653 (Version 1)
Quarter: 2022Q2

REPORT INFORMATION
  Report Type: Spontaneous
  Country: US (occurrence: US)
  Receive Date: 20220404
  Receipt Date: 20220404
  Transmission Date: 20220721
  Serious: No
  Sender: FDA-Public Use
  Company Number: US-PFIZER INC-2021695044

PATIENT
  Age: 67 Year
  Sex: Female
  Weight: 59.87 kg

DRUGS (1)
  1. LIPITOR [Suspect]
     Active Substance: ATORVASTATIN CALCIUM
     Indication: Blood cholesterol increased
     Dosage: 10 MG, 2X/WEEK

REACTIONS (3)
  - Back pain [Unknown]
  - Pain [Unknown]
  - Off label use [Unknown]
